FAERS Safety Report 7303701-0 (Version None)
Quarter: 2011Q1

REPORT INFORMATION
  Report Type: 
  Country: None (occurrence: None)
  Receive Date: 20110221
  Receipt Date: 20110207
  Transmission Date: 20110831
  Serious: Yes (Hospitalization)
  Sender: FDA-Public Use
  Company Number: GR-BAYER-2011-011992

PATIENT
  Age: 76 Year
  Sex: Female
  Weight: 69 kg

DRUGS (4)
  1. CIPROXIN [Suspect]
     Indication: URINARY TRACT INFECTION
     Dosage: 500 MG, BID
     Route: 048
     Dates: start: 20101108, end: 20101110
  2. GLUCOPHAGE [Concomitant]
     Indication: DIABETES MELLITUS
     Dosage: 850 MG, TID
     Route: 048
  3. ZURCAZOL [Concomitant]
     Indication: GASTRITIS PROPHYLAXIS
     Route: 048
  4. IDEOS [Concomitant]
     Indication: OSTEOPOROSIS
     Route: 048

REACTIONS (7)
  - DIZZINESS [None]
  - GAIT DISTURBANCE [None]
  - ABDOMINAL PAIN UPPER [None]
  - HYPERTENSION [None]
  - SENSATION OF FOREIGN BODY [None]
  - SWELLING [None]
  - CHEST DISCOMFORT [None]
